FAERS Safety Report 11493307 (Version 1)
Quarter: 2015Q3

REPORT INFORMATION
  Report Type: Spontaneous
  Country: US (occurrence: US)
  Receive Date: 20150911
  Receipt Date: 20150911
  Transmission Date: 20151125
  Serious: No
  Sender: FDA-Public Use
  Company Number: US-ROCHE-1024828

PATIENT
  Sex: Male

DRUGS (3)
  1. TELAPREVIR [Suspect]
     Active Substance: TELAPREVIR
     Indication: CHRONIC HEPATITIS C
     Route: 065
  2. PEGASYS [Suspect]
     Active Substance: PEGINTERFERON ALFA-2A
     Indication: CHRONIC HEPATITIS C
     Dosage: THERAPY LENGTH - 48 WEEKS
     Route: 058
     Dates: start: 20111018
  3. RIBAVIRIN. [Suspect]
     Active Substance: RIBAVIRIN
     Indication: CHRONIC HEPATITIS C
     Dosage: THERAPY LENGTH - 48 WEEKS
     Route: 048
     Dates: start: 20111018

REACTIONS (4)
  - Embolism [Unknown]
  - Coagulopathy [Unknown]
  - Eyelid function disorder [Unknown]
  - Dyspnoea [Unknown]
